FAERS Safety Report 6260040-7 (Version None)
Quarter: 2009Q3

REPORT INFORMATION
  Report Type: 
  Country: None (occurrence: None)
  Receive Date: 20090708
  Receipt Date: 20090316
  Transmission Date: 20100115
  Serious: No
  Sender: FDA-Public Use
  Company Number: US-BAYER-200916005NA

PATIENT
  Age: 34 Year
  Sex: Female
  Weight: 127 kg

DRUGS (1)
  1. MIRENA [Suspect]
     Indication: CONTRACEPTION
     Dosage: CONTINUOUS DELIVERY
     Route: 015
     Dates: start: 20080315

REACTIONS (2)
  - IUCD COMPLICATION [None]
  - WEIGHT INCREASED [None]
